FAERS Safety Report 12853806 (Version 3)
Quarter: 2016Q4

REPORT INFORMATION
  Report Type: Spontaneous
  Country: DE (occurrence: DE)
  Receive Date: 20161017
  Receipt Date: 20161221
  Transmission Date: 20170207
  Serious: Yes (Life-Threatening, Hospitalization, Other)
  Sender: FDA-Public Use
  Company Number: PHHY2016DE141250

PATIENT
  Age: 76 Year
  Sex: Male
  Weight: 89 kg

DRUGS (8)
  1. ARZERRA [Suspect]
     Active Substance: OFATUMUMAB
     Indication: CHRONIC LYMPHOCYTIC LEUKAEMIA
     Dosage: 12 CYCLES
     Route: 065
     Dates: start: 201507, end: 201601
  2. MABTHERA [Suspect]
     Active Substance: RITUXIMAB
     Indication: CHRONIC LYMPHOCYTIC LEUKAEMIA
     Dosage: UNK
     Route: 065
     Dates: start: 201101, end: 201103
  3. MABTHERA [Suspect]
     Active Substance: RITUXIMAB
     Dosage: UNK
     Route: 065
     Dates: start: 201310
  4. IMBRUVICA [Suspect]
     Active Substance: IBRUTINIB
     Indication: CHRONIC LYMPHOCYTIC LEUKAEMIA
     Dosage: 420 MG, UNK
     Route: 065
     Dates: start: 201501, end: 201507
  5. BENDAMUSTINE [Concomitant]
     Active Substance: BENDAMUSTINE
     Dosage: 2 CYCLES
     Route: 065
     Dates: start: 201312
  6. BENDAMUSTINE [Concomitant]
     Active Substance: BENDAMUSTINE
     Indication: CHRONIC LYMPHOCYTIC LEUKAEMIA
     Dosage: UNK
     Route: 065
     Dates: start: 201101, end: 201103
  7. BENDAMUSTINE [Concomitant]
     Active Substance: BENDAMUSTINE
     Dosage: UNK
     Route: 065
     Dates: start: 201310
  8. BENDAMUSTINE [Concomitant]
     Active Substance: BENDAMUSTINE
     Dosage: 2 CYCLES
     Route: 065
     Dates: start: 201401, end: 201402

REACTIONS (2)
  - Acute myeloid leukaemia [Not Recovered/Not Resolved]
  - Squamous cell carcinoma of skin [Not Recovered/Not Resolved]

NARRATIVE: CASE EVENT DATE: 201403
